FAERS Safety Report 6911781-7 (Version None)
Quarter: 2010Q3

REPORT INFORMATION
  Report Type: 
  Country: None (occurrence: None)
  Receive Date: 20100806
  Receipt Date: 20070821
  Transmission Date: 20110219
  Serious: No
  Sender: FDA-Public Use
  Company Number: US-PFIZER INC-2007069297

PATIENT
  Sex: Male
  Weight: 105 kg

DRUGS (9)
  1. DETROL LA [Suspect]
     Indication: POLLAKIURIA
     Dates: start: 20070808
  2. ALLOPURINOL [Concomitant]
  3. COLCHICINE [Concomitant]
  4. ZETIA [Concomitant]
  5. MULTI-VITAMINS [Concomitant]
  6. ACETYLSALICYLIC ACID SRT [Concomitant]
  7. SAW PALMETTO [Concomitant]
  8. GRAPE SEED [Concomitant]
  9. LISINOPRIL [Concomitant]
     Dates: start: 19870101

REACTIONS (4)
  - ARTHRALGIA [None]
  - JOINT SWELLING [None]
  - MUSCULOSKELETAL STIFFNESS [None]
  - OEDEMA PERIPHERAL [None]
